FAERS Safety Report 21594936 (Version 2)
Quarter: 2023Q1

REPORT INFORMATION
  Report Type: Report from Study
  Country: US (occurrence: US)
  Receive Date: 20221115
  Receipt Date: 20230315
  Transmission Date: 20230417
  Serious: Yes (Hospitalization, Other)
  Sender: FDA-Public Use
  Company Number: US-RECORDATI RARE DISEASE INC.-2022005570

PATIENT

DRUGS (5)
  1. CARBAGLU [Suspect]
     Active Substance: CARGLUMIC ACID
     Indication: Hyperglycinaemia
     Dosage: 600 MILLIGRAM, TID
     Dates: start: 201909, end: 202210
  2. CARBAGLU [Suspect]
     Active Substance: CARGLUMIC ACID
     Dosage: 1000 MILLIGRAM (3 TABLETS), TID
     Dates: start: 202210
  3. FAMOTIDINE [Concomitant]
     Active Substance: FAMOTIDINE
     Indication: Product used for unknown indication
     Dosage: UNK
     Dates: start: 20221031
  4. LORATADINE [Concomitant]
     Active Substance: LORATADINE
     Indication: Product used for unknown indication
     Dosage: UNK (STRENGTH: 5MG/5ML)
     Dates: start: 20220912
  5. BENADRYL [Concomitant]
     Active Substance: DIPHENHYDRAMINE HYDROCHLORIDE
     Indication: Product used for unknown indication
     Dosage: UNK
     Dates: start: 20220912

REACTIONS (10)
  - Delirium [Recovering/Resolving]
  - Seizure [Recovering/Resolving]
  - Pneumonia [Unknown]
  - Rhinovirus infection [Unknown]
  - Influenza [Unknown]
  - Nasopharyngitis [Unknown]
  - Constipation [Unknown]
  - Constipation [Unknown]
  - Vomiting [Unknown]
  - Ammonia increased [Unknown]

NARRATIVE: CASE EVENT DATE: 20221001
